FAERS Safety Report 19643268 (Version 1)
Quarter: 2021Q3

REPORT INFORMATION
  Report Type: Report from Study
  Country: US (occurrence: US)
  Receive Date: 20210731
  Receipt Date: 20210731
  Transmission Date: 20211014
  Serious: No
  Sender: FDA-Public Use
  Company Number: NVSC2021US162548

PATIENT
  Sex: Male

DRUGS (1)
  1. KESIMPTA [Suspect]
     Active Substance: OFATUMUMAB
     Indication: RELAPSING MULTIPLE SCLEROSIS
     Dosage: 20 MG, QW (BENEATH THE SKIN)
     Route: 058
     Dates: start: 20210707

REACTIONS (5)
  - Paraesthesia [Recovering/Resolving]
  - Myalgia [Unknown]
  - Pyrexia [Recovering/Resolving]
  - Joint stiffness [Recovering/Resolving]
  - Chills [Recovering/Resolving]
